FAERS Safety Report 11078289 (Version 1)
Quarter: 2015Q2

REPORT INFORMATION
  Report Type: Spontaneous
  Country: US (occurrence: None)
  Receive Date: 20150429
  Receipt Date: 20150429
  Transmission Date: 20150821
  Serious: No
  Sender: FDA-Public Use
  Company Number: None

PATIENT
  Age: 62 Year
  Sex: Male

DRUGS (4)
  1. SIMVASTATIN. [Concomitant]
     Active Substance: SIMVASTATIN
  2. LOSARTAN [Concomitant]
     Active Substance: LOSARTAN
  3. COPAXONE [Suspect]
     Active Substance: GLATIRAMER ACETATE
     Indication: MULTIPLE SCLEROSIS
     Dosage: 20MG/ML?QD?SQ
     Dates: start: 20120604
  4. AMANTIDINE [Concomitant]
     Active Substance: AMANTADINE

REACTIONS (2)
  - Hypoaesthesia [None]
  - Nasopharyngitis [None]

NARRATIVE: CASE EVENT DATE: 20150414
